FAERS Safety Report 8328845-6 (Version None)
Quarter: 2012Q2

REPORT INFORMATION
  Report Type: 
  Country: None (occurrence: None)
  Receive Date: 20120502
  Receipt Date: 20120423
  Transmission Date: 20120825
  Serious: Yes (Other)
  Sender: FDA-Public Use
  Company Number: PHHY2012CO018960

PATIENT
  Sex: Male

DRUGS (1)
  1. TASIGNA [Suspect]
     Dosage: 150 MG, UNK
     Route: 048
     Dates: start: 20111118

REACTIONS (8)
  - PAIN [None]
  - GASTRITIS [None]
  - MUSCULAR WEAKNESS [None]
  - WEIGHT DECREASED [None]
  - BLOOD BILIRUBIN UNCONJUGATED INCREASED [None]
  - SOMNOLENCE [None]
  - ANXIETY [None]
  - MUSCLE RIGIDITY [None]
